FAERS Safety Report 7024742-7 (Version None)
Quarter: 2010Q4

REPORT INFORMATION
  Report Type: 
  Country: None (occurrence: None)
  Receive Date: 20101001
  Receipt Date: 20100921
  Transmission Date: 20110411
  Serious: Yes (Other)
  Sender: FDA-Public Use
  Company Number: CH-JNJFOC-20100906464

PATIENT
  Age: 37 Year
  Sex: Female

DRUGS (2)
  1. REMICADE [Suspect]
     Indication: CROHN'S DISEASE
     Dosage: A TOTAL OF 5 INFUSIONS
     Route: 042
  2. REMICADE [Suspect]
     Indication: RHEUMATOID ARTHRITIS
     Dosage: A TOTAL OF 5 INFUSIONS
     Route: 042

REACTIONS (6)
  - CHEST DISCOMFORT [None]
  - COUGH [None]
  - DYSPHONIA [None]
  - INFUSION RELATED REACTION [None]
  - PROLONGED EXPIRATION [None]
  - RASH [None]
